FAERS Safety Report 5117211-2 (Version None)
Quarter: 2006Q3

REPORT INFORMATION
  Report Type: 
  Country: None (occurrence: None)
  Receive Date: 20060926
  Receipt Date: 20060914
  Transmission Date: 20061208
  Serious: Yes (Other)
  Sender: FDA-Public Use
  Company Number: 2006US002077

PATIENT
  Age: 62 Year
  Sex: Male

DRUGS (3)
  1. AMEVIVE [Suspect]
     Indication: PSORIASIS
     Dosage: 15 MG, WEEKLY, INTRAMUSCULAR
     Route: 030
     Dates: start: 20031201
  2. ASPIRIN [Concomitant]
  3. NIASPAN [Concomitant]

REACTIONS (2)
  - DIARRHOEA [None]
  - MANTLE CELL LYMPHOMA [None]
